FAERS Safety Report 20650363 (Version 1)
Quarter: 2022Q1

REPORT INFORMATION
  Report Type: Spontaneous
  Country: US (occurrence: None)
  Receive Date: 20220329
  Receipt Date: 20220329
  Transmission Date: 20220423
  Serious: Yes (Hospitalization)
  Sender: FDA-Public Use
  Company Number: None

PATIENT
  Age: 63 Year

DRUGS (1)
  1. SOTROVIMAB [Suspect]
     Active Substance: SOTROVIMAB
     Indication: COVID-19
     Route: 041
     Dates: start: 20220221, end: 20220221

REACTIONS (4)
  - Infusion related reaction [None]
  - Dizziness [None]
  - Unresponsive to stimuli [None]
  - Seizure [None]

NARRATIVE: CASE EVENT DATE: 20220221
